FAERS Safety Report 7601518-0 (Version None)
Quarter: 2011Q3

REPORT INFORMATION
  Report Type: 
  Country: None (occurrence: None)
  Receive Date: 20110711
  Receipt Date: 20110627
  Transmission Date: 20111222
  Serious: Yes (Other)
  Sender: FDA-Public Use
  Company Number: PHHY2011BR56955

PATIENT
  Sex: Male

DRUGS (4)
  1. CILOSTAZOL [Concomitant]
     Indication: CARDIOVASCULAR DISORDER
     Dosage: UNK
  2. EXELON [Suspect]
     Indication: DEMENTIA ALZHEIMER'S TYPE
     Dosage: 9MG/5CM2
  3. DIOVAN [Suspect]
     Indication: HYPERTENSION
     Dosage: 160 MG, UNK
  4. CITALOPRAM [Concomitant]
     Dosage: UNK

REACTIONS (5)
  - UPPER LIMB FRACTURE [None]
  - TOOTH INFECTION [None]
  - FALL [None]
  - FOOD POISONING [None]
  - HYPOGLYCAEMIA [None]
